FAERS Safety Report 11592142 (Version 2)
Quarter: 2015Q4

REPORT INFORMATION
  Report Type: Report from Study
  Country: US (occurrence: US)
  Receive Date: 20151005
  Receipt Date: 20151020
  Transmission Date: 20160304
  Serious: Yes (Disabling)
  Sender: FDA-Public Use
  Company Number: PHEH2015US019453

PATIENT
  Age: 22 Year
  Sex: Male
  Weight: 95.24 kg

DRUGS (1)
  1. GILENYA [Suspect]
     Active Substance: FINGOLIMOD HYDROCHLORIDE
     Indication: RELAPSING-REMITTING MULTIPLE SCLEROSIS
     Dosage: 0.5 MG, QD
     Route: 048
     Dates: start: 20130420, end: 201412

REACTIONS (8)
  - Visual impairment [Recovering/Resolving]
  - Central nervous system lesion [Unknown]
  - Vitamin D decreased [Unknown]
  - Hypoaesthesia [Recovering/Resolving]
  - Demyelination [Unknown]
  - White blood cell count decreased [Unknown]
  - Lymphocyte count decreased [Unknown]
  - Multiple sclerosis relapse [Recovering/Resolving]

NARRATIVE: CASE EVENT DATE: 20130607
